FAERS Safety Report 12067007 (Version 2)
Quarter: 2016Q4

REPORT INFORMATION
  Report Type: Spontaneous
  Country: NO (occurrence: NO)
  Receive Date: 20160211
  Receipt Date: 20161207
  Transmission Date: 20170206
  Serious: Yes (Other)
  Sender: FDA-Public Use
  Company Number: NO-IPSEN BIOPHARMACEUTICALS, INC.-2016-01196

PATIENT
  Sex: Female

DRUGS (3)
  1. RESTYLANE VITAL [Suspect]
     Active Substance: HYALURONIC ACID
     Dosage: 0.5 ML
     Route: 065
     Dates: start: 20151215, end: 20151215
  2. RESTYLANE VITAL [Suspect]
     Active Substance: HYALURONIC ACID
     Indication: SKIN COSMETIC PROCEDURE
     Dosage: 0.5 ML
     Route: 065
     Dates: start: 20160112, end: 20160112
  3. AZZALURE [Suspect]
     Active Substance: BOTULINUM TOXIN TYPE A
     Indication: SKIN WRINKLING
     Dosage: NOT REPORTED
     Route: 065
     Dates: start: 20151215, end: 20151215

REACTIONS (3)
  - Hypertrophic scar [Not Recovered/Not Resolved]
  - Arterial occlusive disease [Recovered/Resolved with Sequelae]
  - Necrosis [Recovered/Resolved with Sequelae]

NARRATIVE: CASE EVENT DATE: 2016
